FAERS Safety Report 8074855-6 (Version None)
Quarter: 2012Q1

REPORT INFORMATION
  Report Type: 
  Country: None (occurrence: None)
  Receive Date: 20120126
  Receipt Date: 20120120
  Transmission Date: 20120608
  Serious: Yes (Hospitalization)
  Sender: FDA-Public Use
  Company Number: DE-ROCHE-1021276

PATIENT
  Age: 52 Year
  Sex: Male
  Weight: 59 kg

DRUGS (6)
  1. FORTECORTIN [Concomitant]
     Dates: start: 20110801
  2. PANTOPRAZOLE [Concomitant]
     Dates: start: 20100101
  3. VEMURAFENIB [Suspect]
     Indication: METASTATIC MALIGNANT MELANOMA
     Route: 048
     Dates: start: 20111121, end: 20111208
  4. TORSEMIDE [Concomitant]
     Dates: start: 20110101
  5. KEPPRA [Concomitant]
     Dates: start: 20111028
  6. VEMURAFENIB [Suspect]
     Route: 048
     Dates: start: 20111214, end: 20120102

REACTIONS (2)
  - ERYSIPELAS [None]
  - CELLULITIS [None]
